FAERS Safety Report 8829917 (Version 1)
Quarter: 2012Q4

REPORT INFORMATION
  Report Type: Spontaneous
  Country: FR (occurrence: None)
  Receive Date: 20121004
  Receipt Date: 20121004
  Transmission Date: 20130627
  Serious: Yes (Life-Threatening)
  Sender: FDA-Public Use
  Company Number: 1428623

PATIENT
  Age: 64 Year
  Sex: Female

DRUGS (9)
  1. DOCETAXEL [Suspect]
     Indication: BREAST ADENOCARCINOMA
     Dosage: 8 FD, 1 in 1 single dose
     Route: 042
     Dates: start: 20120704, end: 20120704
  2. GLUCOR [Concomitant]
  3. JANUVIA [Concomitant]
  4. DIAMICRON [Concomitant]
  5. PLAVIX [Concomitant]
  6. IKOREL [Concomitant]
  7. TAHOR [Concomitant]
  8. COVERSYL [Concomitant]
  9. ATENOLOL [Concomitant]

REACTIONS (2)
  - Palmar-plantar erythrodysaesthesia syndrome [None]
  - Febrile bone marrow aplasia [None]
